FAERS Safety Report 6262986-2 (Version None)
Quarter: 2009Q3

REPORT INFORMATION
  Report Type: 
  Country: None (occurrence: None)
  Receive Date: 20090710
  Receipt Date: 20070427
  Transmission Date: 20100115
  Serious: Yes (Hospitalization, Other)
  Sender: FDA-Public Use
  Company Number: US-ASTRAZENECA-2006UW25304

PATIENT
  Age: 11636 Day
  Sex: Male
  Weight: 69.9 kg

DRUGS (26)
  1. SEROQUEL [Suspect]
     Indication: PSYCHOTIC DISORDER
     Dosage: 100 MG - 600 MG
     Route: 048
     Dates: start: 19990507
  2. SEROQUEL [Suspect]
     Indication: DEPRESSION
     Dosage: 100 MG - 600 MG
     Route: 048
     Dates: start: 19990507
  3. SEROQUEL [Suspect]
     Indication: SCHIZOPHRENIA
     Dosage: 100 MG - 600 MG
     Route: 048
     Dates: start: 19990507
  4. SEROQUEL [Suspect]
     Dosage: 100 MG - 400 MG
     Route: 048
     Dates: start: 19990510, end: 20040220
  5. SEROQUEL [Suspect]
     Dosage: 100 MG - 400 MG
     Route: 048
     Dates: start: 19990510, end: 20040220
  6. SEROQUEL [Suspect]
     Dosage: 100 MG - 400 MG
     Route: 048
     Dates: start: 19990510, end: 20040220
  7. GEODON [Concomitant]
     Dates: start: 20020315
  8. HALDOL [Concomitant]
     Dates: start: 20010101
  9. NAVANE [Concomitant]
     Dates: start: 19961118
  10. RISPERDAL [Concomitant]
     Dates: start: 19960916
  11. THORAZINE [Concomitant]
     Dates: start: 19920101
  12. REMERON [Concomitant]
     Dates: start: 20050101
  13. TRAZODONE HCL [Concomitant]
  14. PANTOPRAZOLE SODIUM [Concomitant]
  15. METFORMIN HCL [Concomitant]
  16. OMEPRAZOLE [Concomitant]
  17. LORAZEPAM [Concomitant]
  18. DIPHENHYDRAMINE HCL [Concomitant]
  19. PAROXETINE HCL [Concomitant]
  20. ENALAPRIL [Concomitant]
  21. CITALOPRAM HYDROBROMIDE [Concomitant]
  22. MIRTAZAPINE [Concomitant]
  23. ATORVASTATIN CALCIUM [Concomitant]
  24. ALBUTEROL [Concomitant]
  25. PIOGLITAZONE [Concomitant]
  26. AMLODIPINE [Concomitant]

REACTIONS (7)
  - DIABETIC FOOT [None]
  - DIABETIC NEPHROPATHY [None]
  - DIABETIC NEUROPATHY [None]
  - DIABETIC RETINOPATHY [None]
  - NEUROLEPTIC MALIGNANT SYNDROME [None]
  - PANCREATITIS [None]
  - TYPE 2 DIABETES MELLITUS [None]
